FAERS Safety Report 9210172 (Version 1)
Quarter: 2013Q2

REPORT INFORMATION
  Report Type: Spontaneous
  Country: US (occurrence: US)
  Receive Date: 20130404
  Receipt Date: 20130404
  Transmission Date: 20140414
  Serious: No
  Sender: FDA-Public Use
  Company Number: US-B.I. PHARMACEUTICALS,INC./RIDGEFIELD-2013-BI-08243BP

PATIENT
  Age: 68 Year
  Sex: Male
  Weight: 93 kg

DRUGS (1)
  1. MICARDIS [Suspect]
     Indication: HYPERTENSION
     Dosage: 40 MG
     Route: 048
     Dates: start: 20130304

REACTIONS (2)
  - Rash erythematous [Recovered/Resolved]
  - Paraesthesia [Recovered/Resolved]
